FAERS Safety Report 5270439-3 (Version None)
Quarter: 2007Q1

REPORT INFORMATION
  Report Type: 
  Country: None (occurrence: None)
  Receive Date: 20070314
  Receipt Date: 20070305
  Transmission Date: 20070707
  Serious: Yes (Life-Threatening, Hospitalization, Other)
  Sender: FDA-Public Use
  Company Number: 430005N07JPN

PATIENT
  Age: 20 Year
  Sex: Female

DRUGS (17)
  1. NOVANTRONE [Suspect]
     Dosage: INTRAVENOUS (NOT OTHERWISE SPECIFIED)
     Route: 042
     Dates: start: 20060417, end: 20060423
  2. MYLOTARG [Suspect]
     Dosage: 9 MG/M2, 1 IN 1 DAYS, INTRAVENOUS (NOT OTHERWISE SPECIFIED)
     Route: 042
     Dates: start: 20060222, end: 20060222
  3. MYLOTARG [Suspect]
     Dosage: 9 MG/M2, 1 IN 1 DAYS, INTRAVENOUS (NOT OTHERWISE SPECIFIED)
     Route: 042
     Dates: start: 20060310, end: 20060310
  4. CYTARABINE [Suspect]
     Dosage: INTRAVENOUS (NOT OTHERWISE SPECIFIED)
     Route: 042
     Dates: start: 20060417, end: 20060423
  5. CYTARABINE [Suspect]
     Dosage: INTRAVENOUS (NOT OTHERWISE SPECIFIED)
     Route: 042
     Dates: start: 20060822, end: 20060904
  6. ETOPOSIDE [Suspect]
     Dosage: INTRAVENOUS (NOT OTHERWISE SPECIFIED)
     Route: 042
     Dates: start: 20060417, end: 20060423
  7. HYDROCORTISONE SODIUM SUCCINATE [Suspect]
     Dosage: 100 MG, INTRAVENOUS (NOT OTHERWISE SPECIFIED)
     Route: 042
     Dates: start: 20060427, end: 20060512
  8. ITRACONAZOLE [Concomitant]
  9. BACTRIM [Concomitant]
  10. OMEPRAZOLE [Concomitant]
  11. DOMPERIDONE [Concomitant]
  12. FAMOTIDINE [Concomitant]
  13. HEPARIN SODIUM [Concomitant]
  14. GATIFLOXACIN [Concomitant]
  15. METHYLPREDNISOLONE SODIUM SUCCINATE [Concomitant]
  16. DEXCHLORPHENIRAMINE MALEATE [Concomitant]
  17. HYDROCORTISONE SODIUM SUCCINATE [Concomitant]

REACTIONS (18)
  - ANOREXIA [None]
  - BLOOD FIBRINOGEN INCREASED [None]
  - CARDIOTOXICITY [None]
  - CYSTITIS HAEMORRHAGIC [None]
  - DRUG INEFFECTIVE [None]
  - ELECTROCARDIOGRAM QT CORRECTED INTERVAL PROLONGED [None]
  - ELECTROCARDIOGRAM QT PROLONGED [None]
  - FUNGAL SEPSIS [None]
  - HEPATIC FUNCTION ABNORMAL [None]
  - HYPOKALAEMIA [None]
  - MALNUTRITION [None]
  - PLATELET COUNT DECREASED [None]
  - STAPHYLOCOCCAL SEPSIS [None]
  - TORSADE DE POINTES [None]
  - VENTRICULAR EXTRASYSTOLES [None]
  - VENTRICULAR FLUTTER [None]
  - VENTRICULAR TACHYCARDIA [None]
  - WHITE BLOOD CELL COUNT DECREASED [None]
